FAERS Safety Report 11859299 (Version 1)
Quarter: 2015Q4

REPORT INFORMATION
  Report Type: Spontaneous
  Country: US (occurrence: US)
  Receive Date: 20151221
  Receipt Date: 20151221
  Transmission Date: 20160305
  Serious: No
  Sender: FDA-Public Use
  Company Number: US-BIOMARINAP-US-2015-108337

PATIENT
  Age: 8 Year
  Sex: Male
  Weight: 26 kg

DRUGS (1)
  1. KUVAN [Suspect]
     Active Substance: SAPROPTERIN DIHYDROCHLORIDE
     Indication: PHENYLKETONURIA
     Dosage: 20 MG/KG, QD
     Route: 048
     Dates: start: 20151130

REACTIONS (1)
  - Gastroenteritis [Unknown]

NARRATIVE: CASE EVENT DATE: 20151204
